FAERS Safety Report 9180295 (Version 1)
Quarter: 2013Q1

REPORT INFORMATION
  Report Type: Spontaneous
  Country: US (occurrence: US)
  Receive Date: 20130322
  Receipt Date: 20130322
  Transmission Date: 20140127
  Serious: Yes (Other)
  Sender: FDA-Public Use
  Company Number: US-JNJCP-30000152026

PATIENT
  Sex: Female
  Weight: 73 kg

DRUGS (3)
  1. NEUTROGENA CLEAR PORE CLEANSER MASK [Suspect]
     Indication: REMOVAL OF INERT MATTER FROM SKIN OR SUBCUTANEOUS TISSUE
     Dosage: QUARTER SIZE AMOUNT, ONCE A DAY
     Route: 061
     Dates: start: 20130301, end: 20130302
  2. UNKNOWN [Concomitant]
     Indication: HYPERSENSITIVITY
  3. WALGREENS BENADRYL [Concomitant]
     Indication: HYPERSENSITIVITY

REACTIONS (4)
  - Vision blurred [Recovering/Resolving]
  - Application site swelling [Recovering/Resolving]
  - Application site erythema [Recovering/Resolving]
  - Eye irritation [Recovering/Resolving]
